FAERS Safety Report 4690274-4 (Version None)
Quarter: 2005Q2

REPORT INFORMATION
  Report Type: 
  Country: None (occurrence: None)
  Receive Date: 20050615
  Receipt Date: 20050609
  Transmission Date: 20051028
  Serious: Yes (Other)
  Sender: FDA-Public Use
  Company Number: US-GLAXOSMITHKLINE-A0562047A

PATIENT
  Sex: Female

DRUGS (4)
  1. EPIVIR [Suspect]
  2. COMBIVIR [Suspect]
  3. TRIZIVIR [Suspect]
  4. VIRAMUNE [Suspect]

REACTIONS (1)
  - CONVULSION [None]
